FAERS Safety Report 13674928 (Version 1)
Quarter: 2017Q2

REPORT INFORMATION
  Report Type: Spontaneous
  Country: BR (occurrence: BR)
  Receive Date: 20170621
  Receipt Date: 20170621
  Transmission Date: 20170830
  Serious: Yes (Other)
  Sender: FDA-Public Use
  Company Number: BR-ABBVIE-17P-020-2011084-00

PATIENT
  Sex: Male
  Weight: 95 kg

DRUGS (5)
  1. DEPAKOTE ER [Suspect]
     Active Substance: DIVALPROEX SODIUM
     Indication: JUVENILE MYOCLONIC EPILEPSY
     Dosage: DAILY DOSE: 2000 MILLIGRAM, MORNING/NIGHT; FORM OF ADMIN: COATED TAB PROLONGED RELEASE
     Route: 048
  2. DEPAKENE [Suspect]
     Active Substance: VALPROIC ACID
     Indication: JUVENILE MYOCLONIC EPILEPSY
     Dosage: MORNING/NIGHT
     Route: 048
  3. HIDANTAL [Suspect]
     Active Substance: PHENYTOIN SODIUM
     Indication: JUVENILE MYOCLONIC EPILEPSY
     Route: 065
  4. DEPAKOTE [Suspect]
     Active Substance: DIVALPROEX SODIUM
     Indication: JUVENILE MYOCLONIC EPILEPSY
     Route: 048
  5. KEPPRA [Concomitant]
     Active Substance: LEVETIRACETAM
     Indication: MYOCLONIC EPILEPSY
     Dosage: MORNING/NIGHT
     Route: 048

REACTIONS (3)
  - Drug ineffective [Unknown]
  - Seizure [Unknown]
  - Extra dose administered [Unknown]

NARRATIVE: CASE EVENT DATE: 2004
